FAERS Safety Report 4313615-6 (Version None)
Quarter: 2004Q1

REPORT INFORMATION
  Report Type: 
  Country: None (occurrence: None)
  Receive Date: 20040304
  Receipt Date: 20040216
  Transmission Date: 20041129
  Serious: Yes (Death, Hospitalization, Other)
  Sender: FDA-Public Use
  Company Number: USA040259541

PATIENT
  Age: 97 Year
  Sex: Female

DRUGS (10)
  1. FORTEO [Suspect]
     Indication: FRACTURE
     Dosage: 20 UG/DAY
     Dates: start: 20030501
  2. LISINOPRIL [Concomitant]
  3. DOCUSATE SODIUM [Concomitant]
  4. REMERON [Concomitant]
  5. OSCAL (CALCIUM CARBONATE) [Concomitant]
  6. TYLENOL [Concomitant]
  7. RESOURCE [Concomitant]
  8. ACTONEL (RISDERRONATE SODIUM) [Concomitant]
  9. QUININE [Concomitant]
  10. LEVAQUIN [Concomitant]

REACTIONS (4)
  - COMA [None]
  - HYPOTENSION [None]
  - PYREXIA [None]
  - UROSEPSIS [None]
